FAERS Safety Report 10097130 (Version 3)
Quarter: 2015Q2

REPORT INFORMATION
  Report Type: Spontaneous
  Country: US (occurrence: US)
  Receive Date: 20140422
  Receipt Date: 20150410
  Transmission Date: 20150821
  Serious: Yes (Death, Hospitalization, Disabling, Other)
  Sender: FDA-Public Use
  Company Number: US-009507513-1404USA007063

PATIENT
  Sex: Female

DRUGS (1)
  1. FOSAMAX [Suspect]
     Active Substance: ALENDRONATE SODIUM
     Indication: OSTEOPOROSIS
     Dosage: 70 MG, UNK
     Route: 048
     Dates: end: 2002

REACTIONS (13)
  - Dementia [Unknown]
  - Rib fracture [Unknown]
  - Aortic calcification [Unknown]
  - Pubis fracture [Unknown]
  - Infection [Fatal]
  - Cervical vertebral fracture [Unknown]
  - Osteoarthritis [Unknown]
  - Knee arthroplasty [Unknown]
  - Hip arthroplasty [Unknown]
  - Femur fracture [Fatal]
  - Blood cholesterol increased [Unknown]
  - Pulmonary calcification [Unknown]
  - Osteopenia [Unknown]

NARRATIVE: CASE EVENT DATE: 19961108
